FAERS Safety Report 13463975 (Version 1)
Quarter: 2017Q2

REPORT INFORMATION
  Report Type: Spontaneous
  Country: US (occurrence: US)
  Receive Date: 20170420
  Receipt Date: 20170420
  Transmission Date: 20170830
  Serious: Yes (Disabling)
  Sender: FDA-Public Use
  Company Number: US-ROCHE-713088

PATIENT
  Age: 57 Year
  Sex: Male

DRUGS (4)
  1. LUNESTA [Concomitant]
     Active Substance: ESZOPICLONE
     Indication: SOMNOLENCE
     Route: 048
  2. LIPITOR [Concomitant]
     Active Substance: ATORVASTATIN CALCIUM
     Indication: BLOOD CHOLESTEROL INCREASED
     Route: 048
  3. ACCUTANE [Suspect]
     Active Substance: ISOTRETINOIN
     Indication: ROSACEA
     Dosage: OTHER INDICATION : SKIN
     Route: 048
     Dates: start: 200909, end: 20100521
  4. EXFORGE [Concomitant]
     Active Substance: AMLODIPINE BESYLATE\VALSARTAN
     Indication: BLOOD PRESSURE MEASUREMENT
     Route: 048

REACTIONS (1)
  - Tinnitus [Not Recovered/Not Resolved]

NARRATIVE: CASE EVENT DATE: 201005
